FAERS Safety Report 11376110 (Version 1)
Quarter: 2015Q3

REPORT INFORMATION
  Report Type: Spontaneous
  Country: US (occurrence: US)
  Receive Date: 20150813
  Receipt Date: 20150813
  Transmission Date: 20151125
  Serious: No
  Sender: FDA-Public Use
  Company Number: US-GLAXOSMITHKLINE-US2015GSK099050

PATIENT
  Sex: Male
  Weight: 60.32 kg

DRUGS (10)
  1. VOTRIENT [Suspect]
     Active Substance: PAZOPANIB HYDROCHLORIDE
     Indication: RENAL CANCER
     Dosage: 600 MG, QD
     Route: 048
     Dates: start: 20150617
  2. OXYCODONE [Concomitant]
     Active Substance: OXYCODONE
  3. PHENERGAN [Concomitant]
     Active Substance: PROMETHAZINE HYDROCHLORIDE
  4. ZOFRAN [Suspect]
     Active Substance: ONDANSETRON HYDROCHLORIDE
  5. NORVASC [Concomitant]
     Active Substance: AMLODIPINE BESYLATE
  6. LANTUS [Concomitant]
     Active Substance: INSULIN GLARGINE
  7. XARELTO [Concomitant]
     Active Substance: RIVAROXABAN
  8. EPIPEN (NOS) [Concomitant]
  9. COREG [Suspect]
     Active Substance: CARVEDILOL
  10. AMIODARONE [Concomitant]
     Active Substance: AMIODARONE

REACTIONS (1)
  - Malaise [Unknown]
